FAERS Safety Report 24903245 (Version 1)
Quarter: 2025Q1

REPORT INFORMATION
  Report Type: Spontaneous
  Country: US (occurrence: US)
  Receive Date: 20250130
  Receipt Date: 20250130
  Transmission Date: 20250409
  Serious: No
  Sender: AUROBINDO
  Company Number: US-AUROBINDO-AUR-APL-2024-017036

PATIENT
  Sex: Female

DRUGS (1)
  1. LORAZEPAM [Suspect]
     Active Substance: LORAZEPAM
     Indication: Product used for unknown indication
     Route: 065

REACTIONS (6)
  - Insomnia [Unknown]
  - Paraesthesia [Unknown]
  - Tremor [Unknown]
  - Product substitution issue [Unknown]
  - Abdominal discomfort [Unknown]
  - Decreased appetite [Unknown]
